FAERS Safety Report 8115781 (Version 5)
Quarter: 2013Q2

REPORT INFORMATION
  Report Type: Spontaneous
  Country: US (occurrence: US)
  Receive Date: 20110831
  Receipt Date: 20130524
  Transmission Date: 20140414
  Serious: Yes (Congenital Anomaly, Other)
  Sender: FDA-Public Use
  Company Number: US-PFIZER INC-2011199291

PATIENT
  Sex: Male
  Weight: 3.3 kg

DRUGS (2)
  1. ZOLOFT [Suspect]
     Dosage: UNK
     Route: 064
     Dates: start: 2003
  2. ZOLOFT [Suspect]
     Dosage: 100 MG, UNK
     Route: 064

REACTIONS (4)
  - Maternal exposure during pregnancy [Unknown]
  - Congenital anomaly [Unknown]
  - Persistent foetal circulation [Unknown]
  - Atrial septal defect [Unknown]
